FAERS Safety Report 9423009 (Version 3)
Quarter: 2013Q4

REPORT INFORMATION
  Report Type: Spontaneous
  Country: US (occurrence: US)
  Receive Date: 20130726
  Receipt Date: 20131009
  Transmission Date: 20140711
  Serious: Yes (Hospitalization)
  Sender: FDA-Public Use
  Company Number: US-GLAXOSMITHKLINE-A1001726A

PATIENT
  Age: 73 Year
  Sex: Male
  Weight: 119.1 kg

DRUGS (1)
  1. AVANDIA [Suspect]
     Indication: DIABETES MELLITUS
     Dosage: 4MG TWICE PER DAY
     Route: 048
     Dates: start: 200304, end: 200502

REACTIONS (4)
  - Cardiac failure congestive [Recovering/Resolving]
  - Myocardial infarction [Unknown]
  - Cerebrovascular accident [Unknown]
  - Stent placement [Unknown]
